FAERS Safety Report 19966400 (Version 2)
Quarter: 2021Q4

REPORT INFORMATION
  Report Type: Spontaneous
  Country: US (occurrence: US)
  Receive Date: 20211019
  Receipt Date: 20211020
  Transmission Date: 20220303
  Serious: Yes (Hospitalization)
  Sender: FDA-Public Use
  Company Number: US-JNJFOC-20211018384

PATIENT
  Age: 3 Year
  Sex: Female

DRUGS (1)
  1. CHILDRENS TYLENOL [Suspect]
     Active Substance: ACETAMINOPHEN
     Indication: Pyrexia
     Dosage: PRODUCT START DATE: ON OR ABOUT 07-MAY-2021?4 DOSES TOTAL - 3 DOSES ON OR ABOUT 5/7/2021, 1 DOSE ON
     Route: 065

REACTIONS (4)
  - Product commingling [Unknown]
  - Product label issue [Unknown]
  - Asthma [Unknown]
  - Dysphagia [Unknown]
